FAERS Safety Report 7095860-2 (Version None)
Quarter: 2010Q4

REPORT INFORMATION
  Report Type: 
  Country: None (occurrence: None)
  Receive Date: 20101111
  Receipt Date: 20101102
  Transmission Date: 20110411
  Serious: Yes (Hospitalization)
  Sender: FDA-Public Use
  Company Number: JP-ASTRAZENECA-2010SE52317

PATIENT
  Age: 75 Year
  Sex: Male

DRUGS (2)
  1. SYMBICORT [Suspect]
     Indication: ASTHMA
     Dosage: 2 DF
     Route: 055
     Dates: start: 20101018, end: 20101018
  2. SYMBICORT [Suspect]
     Dosage: 30 DF
     Route: 055
     Dates: start: 20101019, end: 20101020

REACTIONS (3)
  - CARDIAC FAILURE [None]
  - OVERDOSE [None]
  - PLEURAL EFFUSION [None]
